FAERS Safety Report 13847106 (Version 1)
Quarter: 2017Q3

REPORT INFORMATION
  Report Type: Spontaneous
  Country: IN (occurrence: IN)
  Receive Date: 20170808
  Receipt Date: 20170808
  Transmission Date: 20171127
  Serious: Yes (Hospitalization)
  Sender: FDA-Public Use
  Company Number: IN-HQ SPECIALTY-IN-2017INT000253

PATIENT
  Age: 30 Year
  Sex: Male

DRUGS (6)
  1. BLEOMYCIN [Suspect]
     Active Substance: BLEOMYCIN SULFATE
     Indication: CHEMOTHERAPY
  2. BLEOMYCIN [Suspect]
     Active Substance: BLEOMYCIN SULFATE
     Indication: TESTICULAR SEMINOMA (PURE)
     Dosage: UNK
     Route: 065
  3. ETOPOSIDE                          /00511902/ [Suspect]
     Active Substance: ETOPOSIDE
     Indication: TESTICULAR SEMINOMA (PURE)
     Dosage: UNK
     Route: 065
  4. CISPLATIN. [Suspect]
     Active Substance: CISPLATIN
     Indication: CHEMOTHERAPY
  5. CISPLATIN. [Suspect]
     Active Substance: CISPLATIN
     Indication: TESTICULAR SEMINOMA (PURE)
     Dosage: UNK
     Route: 065
  6. ETOPOSIDE                          /00511902/ [Suspect]
     Active Substance: ETOPOSIDE
     Indication: CHEMOTHERAPY

REACTIONS (2)
  - Acute coronary syndrome [Unknown]
  - Dyslipidaemia [Unknown]
